FAERS Safety Report 5150927-0 (Version None)
Quarter: 2006Q4

REPORT INFORMATION
  Report Type: 
  Country: None (occurrence: None)
  Receive Date: 20061114
  Receipt Date: 20061110
  Transmission Date: 20070319
  Serious: Yes (Hospitalization)
  Sender: FDA-Public Use
  Company Number: US-ALLERGAN-0607330US

PATIENT
  Age: 33 Year
  Sex: Male

DRUGS (1)
  1. BOTOX [Suspect]
     Indication: IMPAIRED GASTRIC EMPTYING
     Dosage: 100 UNITS, SINGLE

REACTIONS (3)
  - ABDOMINAL PAIN UPPER [None]
  - PERITONEAL FLUID ANALYSIS ABNORMAL [None]
  - PERITONITIS BACTERIAL [None]
